FAERS Safety Report 14253050 (Version 2)
Quarter: 2017Q4

REPORT INFORMATION
  Report Type: Spontaneous
  Country: KR (occurrence: KR)
  Receive Date: 20171205
  Receipt Date: 20171208
  Transmission Date: 20180321
  Serious: Yes (Other)
  Sender: FDA-Public Use
  Company Number: KR-B.I. PHARMACEUTICALS,INC./RIDGEFIELD-2017-BI-064369

PATIENT

DRUGS (2)
  1. GILOTRIF [Suspect]
     Active Substance: AFATINIB
     Indication: EGFR GENE MUTATION
     Route: 048
  2. GILOTRIF [Suspect]
     Active Substance: AFATINIB
     Indication: NON-SMALL CELL LUNG CANCER

REACTIONS (13)
  - Acne [Unknown]
  - Decreased appetite [Unknown]
  - Pneumonitis [Unknown]
  - Stomatitis [Unknown]
  - Pruritus [Unknown]
  - Interstitial lung disease [Unknown]
  - Diarrhoea [Unknown]
  - Dry skin [Unknown]
  - Metastases to central nervous system [Unknown]
  - Fatigue [Unknown]
  - Malignant neoplasm progression [Unknown]
  - Rash [Unknown]
  - Paronychia [Unknown]
